FAERS Safety Report 5693258-2 (Version None)
Quarter: 2008Q2

REPORT INFORMATION
  Report Type: 
  Country: None (occurrence: None)
  Receive Date: 20080403
  Receipt Date: 20080326
  Transmission Date: 20081010
  Serious: Yes (Other)
  Sender: FDA-Public Use
  Company Number: PHHY2008CA03547

PATIENT
  Age: 74 Year
  Sex: Female

DRUGS (10)
  1. ATENOLOL [Concomitant]
     Dosage: 25 MG, QD
  2. SYNTHROID [Concomitant]
  3. HYDROCHLOROTHIAZIDE [Concomitant]
  4. ZANTAC [Concomitant]
  5. PANTOPRAZOLE SODIUM [Concomitant]
  6. RASILEZ [Suspect]
     Indication: HYPERTENSION
     Dosage: 150 MG, QD
     Route: 048
     Dates: start: 20080304
  7. DYAZIDE [Concomitant]
     Dosage: UNK, QD
  8. ATIVAN [Concomitant]
     Dosage: UNK, PRN
  9. PERCOCET [Concomitant]
     Dosage: 30 MG, QD
  10. ELTROXIN [Concomitant]
     Dosage: 0.05 MG, QD

REACTIONS (5)
  - BACK PAIN [None]
  - CHEST DISCOMFORT [None]
  - CHEST PAIN [None]
  - FATIGUE [None]
  - MUSCULAR WEAKNESS [None]
